FAERS Safety Report 8243716-1 (Version None)
Quarter: 2012Q1

REPORT INFORMATION
  Report Type: 
  Country: None (occurrence: None)
  Receive Date: 20120329
  Receipt Date: 20110419
  Transmission Date: 20120608
  Serious: No
  Sender: FDA-Public Use
  Company Number: US-MYLANLABS-2011S1006752

PATIENT
  Age: 5 Decade
  Sex: Female
  Weight: 90.72 kg

DRUGS (3)
  1. ABILIFY [Concomitant]
  2. CYTOMEL [Concomitant]
  3. EMSAM [Suspect]
     Indication: DEPRESSION
     Route: 062

REACTIONS (1)
  - MUSCLE TIGHTNESS [None]
